FAERS Safety Report 11763818 (Version 1)
Quarter: 2015Q4

REPORT INFORMATION
  Report Type: Spontaneous
  Country: US (occurrence: US)
  Receive Date: 20151120
  Receipt Date: 20151120
  Transmission Date: 20160304
  Serious: No
  Sender: FDA-Public Use
  Company Number: US-ELI_LILLY_AND_COMPANY-US201304006380

PATIENT
  Age: 84 Year
  Sex: Female

DRUGS (2)
  1. VITAMINS NOS [Concomitant]
     Active Substance: VITAMINS
     Dosage: UNK, QD
     Route: 065
  2. FORTEO [Suspect]
     Active Substance: TERIPARATIDE
     Indication: OSTEOPOROSIS
     Dosage: UNK, QD
     Route: 065
     Dates: start: 20130419

REACTIONS (4)
  - Heart rate increased [Unknown]
  - Eye irritation [Unknown]
  - Vision blurred [Unknown]
  - Asthenia [Unknown]

NARRATIVE: CASE EVENT DATE: 20130419
